FAERS Safety Report 16024399 (Version 1)
Quarter: 2019Q1

REPORT INFORMATION
  Report Type: Spontaneous
  Country: US (occurrence: US)
  Receive Date: 20190301
  Receipt Date: 20190301
  Transmission Date: 20190418
  Serious: Yes (Hospitalization, Other)
  Sender: FDA-Public Use
  Company Number: US-ASTRAZENECA-2019SE31658

PATIENT
  Sex: Female

DRUGS (3)
  1. FULVESTRANT. [Suspect]
     Active Substance: FULVESTRANT
     Route: 030
  2. GABAPENTIN. [Concomitant]
     Active Substance: GABAPENTIN
     Indication: NEUROPATHY PERIPHERAL
     Dates: start: 201402
  3. IBRANCE [Suspect]
     Active Substance: PALBOCICLIB
     Indication: BREAST CANCER METASTATIC
     Dosage: 125MG CAPSULE BY MOUTH ONCE PER DAY FOR 21 DAYS AND OFF FOR 7 DAYS
     Route: 048
     Dates: start: 201707

REACTIONS (2)
  - Tumour marker increased [Unknown]
  - Bacterial colitis [Recovered/Resolved]

NARRATIVE: CASE EVENT DATE: 201707
